FAERS Safety Report 7451329-4 (Version None)
Quarter: 2011Q2

REPORT INFORMATION
  Report Type: 
  Country: None (occurrence: None)
  Receive Date: 20110422
  Receipt Date: 20110414
  Transmission Date: 20111010
  Serious: Yes (Death, Hospitalization)
  Sender: FDA-Public Use
  Company Number: 2011000941

PATIENT
  Age: 52 Year
  Sex: Female

DRUGS (4)
  1. POTASSIUM CHLORIDE [Concomitant]
  2. PROCHLORPERAZINE EDISYLATE (PROCHLORRPERAZINE EDISYLATE) [Concomitant]
  3. ERLOTINIB HYDROCHLORIDE [Suspect]
     Indication: NON-SMALL CELL LUNG CANCER
     Dosage: 150 MG, DAILY, ORAL
     Route: 048
     Dates: start: 20101110
  4. ALBUTEROL (SALABUTAMOL) [Concomitant]

REACTIONS (6)
  - DEHYDRATION [None]
  - ASTHENIA [None]
  - UPPER RESPIRATORY TRACT INFECTION [None]
  - FATIGUE [None]
  - HYPOKALAEMIA [None]
  - VOMITING [None]
